FAERS Safety Report 5495475-3 (Version None)
Quarter: 2007Q4

REPORT INFORMATION
  Report Type: 
  Country: None (occurrence: None)
  Receive Date: 20071023
  Receipt Date: 20071015
  Transmission Date: 20080405
  Serious: Yes (Death, Hospitalization)
  Sender: FDA-Public Use
  Company Number: 162198USA

PATIENT
  Age: 37 Year
  Sex: Female

DRUGS (1)
  1. FLUOROURACIL [Suspect]
     Indication: COLON CANCER
     Dosage: DAY 1-5, REPEATED Q 28 DAYS FOR 6 CYCLES (425 MG/M2), INTRAVENOUS
     Route: 042

REACTIONS (6)
  - ANAEMIA [None]
  - BRONCHIOLITIS [None]
  - PULMONARY HYPERTENSION [None]
  - RESPIRATORY FAILURE [None]
  - SPUTUM DISCOLOURED [None]
  - TACHYCARDIA [None]
